FAERS Safety Report 21138772 (Version 2)
Quarter: 2022Q3

REPORT INFORMATION
  Report Type: Report from Study
  Country: US (occurrence: US)
  Receive Date: 20220727
  Receipt Date: 20220929
  Transmission Date: 20221027
  Serious: No
  Sender: FDA-Public Use
  Company Number: US-BRISTOL-MYERS SQUIBB COMPANY-2022-080707

PATIENT
  Age: 74 Year
  Sex: Male
  Weight: 86.18 kg

DRUGS (16)
  1. REVLIMID [Suspect]
     Active Substance: LENALIDOMIDE
     Indication: Plasma cell myeloma
     Dosage: FREQ : ONCE A DAY FOR 21 DAYS AND OFF FOR 7 DAYS
     Route: 048
     Dates: start: 20211012
  2. REVLIMID [Suspect]
     Active Substance: LENALIDOMIDE
     Indication: Amyloidosis
  3. DEXAMETHASONE [Concomitant]
     Active Substance: DEXAMETHASONE
     Route: 065
  4. ASPIRIN [Concomitant]
     Active Substance: ASPIRIN
     Route: 065
  5. CALCIUM CARBONATE [Concomitant]
     Active Substance: CALCIUM CARBONATE
     Route: 065
  6. VITAMINS [Concomitant]
     Active Substance: VITAMINS
     Route: 065
  7. ACYCLOVIR [Concomitant]
     Active Substance: ACYCLOVIR
     Dosage: FREQUENCY: TWICE DAILY
     Route: 065
  8. CETIRIZINE [Concomitant]
     Active Substance: CETIRIZINE HYDROCHLORIDE
     Route: 065
  9. FISH OIL [Concomitant]
     Active Substance: FISH OIL
     Route: 065
  10. PREVACID [Concomitant]
     Active Substance: LANSOPRAZOLE
     Route: 065
  11. LEVOTHYROXINE SODIUM [Concomitant]
     Active Substance: LEVOTHYROXINE SODIUM
     Route: 065
  12. ZOFRAN [Concomitant]
     Active Substance: ONDANSETRON HYDROCHLORIDE
     Route: 065
  13. PSYLLIUM HUSKS [Concomitant]
     Active Substance: PSYLLIUM HUSK
     Route: 065
  14. SULFAMETHOXAZOLE [Concomitant]
     Active Substance: SULFAMETHOXAZOLE
     Route: 065
  15. ZOCOR [Concomitant]
     Active Substance: SIMVASTATIN
     Route: 065
  16. ZINC [ZINC SULFATE MONOHYDRATE] [Concomitant]
     Route: 065

REACTIONS (3)
  - Fatigue [Unknown]
  - Constipation [Unknown]
  - Fall [Unknown]
